FAERS Safety Report 8374484-0 (Version None)
Quarter: 2012Q2

REPORT INFORMATION
  Report Type: 
  Country: None (occurrence: None)
  Receive Date: 20120521
  Receipt Date: 20120507
  Transmission Date: 20120825
  Serious: No
  Sender: FDA-Public Use
  Company Number: US-JNJFOC-20120507320

PATIENT
  Sex: Female
  Weight: 120.2 kg

DRUGS (4)
  1. CYMBALTA [Concomitant]
     Indication: DEPRESSION
     Route: 048
     Dates: start: 20120301
  2. CYMBALTA [Concomitant]
     Indication: ANXIETY
     Route: 048
     Dates: start: 20120301
  3. KLONOPIN [Concomitant]
     Indication: ANXIETY
     Route: 048
  4. DURAGESIC-100 [Suspect]
     Indication: BACK PAIN
     Route: 062

REACTIONS (3)
  - PRODUCT ADHESION ISSUE [None]
  - DRUG INEFFECTIVE [None]
  - WRONG TECHNIQUE IN DRUG USAGE PROCESS [None]
